FAERS Safety Report 5002017-5 (Version None)
Quarter: 2006Q2

REPORT INFORMATION
  Report Type: 
  Country: None (occurrence: None)
  Receive Date: 20060515
  Receipt Date: 20060106
  Transmission Date: 20061013
  Serious: Yes (Hospitalization)
  Sender: FDA-Public Use
  Company Number: US-MERCK-0601USA00780

PATIENT
  Age: 47 Year
  Sex: Male
  Weight: 95 kg

DRUGS (7)
  1. VIOXX [Suspect]
     Indication: BACK PAIN
     Route: 048
  2. VIOXX [Suspect]
     Route: 048
  3. ASPIRIN [Concomitant]
     Route: 065
  4. ALTACE [Concomitant]
     Route: 065
  5. ACTOS [Concomitant]
     Route: 065
  6. LIPITOR [Concomitant]
     Route: 065
  7. NITRO [Concomitant]
     Route: 065

REACTIONS (2)
  - ANXIETY [None]
  - MYOCARDIAL INFARCTION [None]
